FAERS Safety Report 11096150 (Version 1)
Quarter: 2015Q2

REPORT INFORMATION
  Report Type: Spontaneous
  Country: GB (occurrence: None)
  Receive Date: 20150505
  Receipt Date: 20150505
  Transmission Date: 20150821
  Serious: Yes (Life-Threatening)
  Sender: FDA-Public Use
  Company Number: FK201501998

PATIENT
  Age: 51 Year
  Sex: Female
  Weight: 95.1 kg

DRUGS (8)
  1. PROPOFOL (MANUFACTURER UNKNOWN) (PROPOFOL) (PROPOFOL) [Suspect]
     Active Substance: PROPOFOL
     Indication: INDUCTION OF ANAESTHESIA
     Route: 042
     Dates: start: 20150404, end: 20150404
  2. IBUPROFEN. [Concomitant]
     Active Substance: IBUPROFEN
  3. SIMVASTATIN. [Concomitant]
     Active Substance: SIMVASTATIN
  4. SITAGLIPTIN [Concomitant]
     Active Substance: SITAGLIPTIN
  5. FENTANYL (FENTANYL) (FENTANYL) [Suspect]
     Active Substance: FENTANYL
  6. METFORMIN [Concomitant]
     Active Substance: METFORMIN HYDROCHLORIDE
  7. LISINOPRIL. [Concomitant]
     Active Substance: LISINOPRIL
  8. ATRACURIUM (ATRACURIUM) [Suspect]
     Active Substance: ATRACURIUM
     Indication: PRODUCT USED FOR UNKNOWN INDICATION
     Route: 042
     Dates: start: 20150404, end: 20150404

REACTIONS (1)
  - Anaphylactic reaction [None]

NARRATIVE: CASE EVENT DATE: 20150404
